FAERS Safety Report 9939376 (Version 1)
Quarter: 2014Q1

REPORT INFORMATION
  Report Type: Report from Study
  Country: US (occurrence: US)
  Receive Date: 20140303
  Receipt Date: 20140303
  Transmission Date: 20141002
  Serious: No
  Sender: FDA-Public Use
  Company Number: US-ABBVIE-13P-163-1038813-00

PATIENT
  Age: 54 Year
  Sex: Female

DRUGS (5)
  1. HUMIRA [Suspect]
     Indication: PSORIASIS
     Dates: start: 201204, end: 201210
  2. METOPROLOL [Concomitant]
     Indication: HYPERTENSION
     Dosage: DAILY
  3. LISINOPRIL [Concomitant]
     Indication: HYPERTENSION
  4. WATER PILL [Concomitant]
     Indication: JOINT SWELLING
  5. SIMVASTATIN [Concomitant]
     Indication: BLOOD CHOLESTEROL

REACTIONS (5)
  - Cough [Not Recovered/Not Resolved]
  - Staphylococcal infection [Not Recovered/Not Resolved]
  - Staphylococcal infection [Not Recovered/Not Resolved]
  - Psoriasis [Not Recovered/Not Resolved]
  - Nasopharyngitis [Not Recovered/Not Resolved]
